FAERS Safety Report 19181014 (Version 1)
Quarter: 2021Q2

REPORT INFORMATION
  Report Type: Spontaneous
  Country: IN (occurrence: IN)
  Receive Date: 20210426
  Receipt Date: 20210426
  Transmission Date: 20210717
  Serious: Yes (Other)
  Sender: FDA-Public Use
  Company Number: IN-LUPIN LIMITED-2021-05239

PATIENT
  Age: 52 Year
  Sex: Male

DRUGS (4)
  1. MANNITOL. [Suspect]
     Active Substance: MANNITOL
     Indication: RETINAL ARTERY OCCLUSION
     Dosage: 350 MILLILITER
     Route: 065
  2. METHYLPREDNISOLONE. [Suspect]
     Active Substance: METHYLPREDNISOLONE
     Indication: RETINAL ARTERY OCCLUSION
     Dosage: 1 GRAM, QD
     Route: 042
  3. HYDROXYCHLOROQUINE [HYDROXYCHLOROQUINE SULFATE] [Concomitant]
     Active Substance: HYDROXYCHLOROQUINE SULFATE
     Indication: SYSTEMIC LUPUS ERYTHEMATOSUS
     Dosage: 400 MILLIGRAM, QD
     Route: 065
  4. METHYLPREDNISOLONE. [Concomitant]
     Active Substance: METHYLPREDNISOLONE
     Indication: SYSTEMIC LUPUS ERYTHEMATOSUS
     Dosage: 80 MILLIGRAM PER WEEK
     Route: 030

REACTIONS (1)
  - Drug ineffective [Unknown]
